FAERS Safety Report 13196678 (Version 1)
Quarter: 2017Q1

REPORT INFORMATION
  Report Type: Spontaneous
  Country: US (occurrence: US)
  Receive Date: 20170208
  Receipt Date: 20170208
  Transmission Date: 20170428
  Serious: No
  Sender: FDA-Public Use
  Company Number: US-PFIZER INC-2017052696

PATIENT
  Sex: Male

DRUGS (1)
  1. XELJANZ [Suspect]
     Active Substance: TOFACITINIB CITRATE
     Dosage: 5 MG, UNK

REACTIONS (9)
  - Back pain [Unknown]
  - Musculoskeletal stiffness [Unknown]
  - Cough [Unknown]
  - Muscular weakness [Unknown]
  - Anxiety [Unknown]
  - Dyspnoea [Unknown]
  - Mood altered [Unknown]
  - Depression [Unknown]
  - Arthralgia [Unknown]
